FAERS Safety Report 15022252 (Version 2)
Quarter: 2018Q4

REPORT INFORMATION
  Report Type: Spontaneous
  Country: CA (occurrence: CA)
  Receive Date: 20180618
  Receipt Date: 20181017
  Transmission Date: 20190204
  Serious: Yes (Other)
  Sender: FDA-Public Use
  Company Number: CA-PFIZER INC-2017172753

PATIENT
  Age: 68 Year
  Sex: Female

DRUGS (9)
  1. XELJANZ [Suspect]
     Active Substance: TOFACITINIB CITRATE
     Indication: RHEUMATOID ARTHRITIS
     Dosage: 5 MG, 2X/DAY
     Route: 048
     Dates: start: 20170412, end: 20180604
  2. ACETAMINOPHEN. [Concomitant]
     Active Substance: ACETAMINOPHEN
     Dosage: 650 MG, THREE TIMES A DAY EVERY 8 HOURS
     Route: 048
  3. DILAUDID [Concomitant]
     Active Substance: HYDROMORPHONE HYDROCHLORIDE
     Indication: PAIN
     Dosage: 1-2 TABLETS (DF) EVERY 3-4 HOURS IF NEEDED
     Route: 048
  4. APO-HYDROXYQUINE [Concomitant]
     Active Substance: HYDROXYCHLOROQUINE SULFATE
     Dosage: 200 MG, TWICE A DAY
  5. XELJANZ [Suspect]
     Active Substance: TOFACITINIB CITRATE
     Dosage: 5 MG, 2X/DAY
     Route: 048
     Dates: start: 201807
  6. SERTRALINE [Concomitant]
     Active Substance: SERTRALINE HYDROCHLORIDE
     Indication: ANXIETY
     Dosage: UNK
  7. CELECOXIB. [Concomitant]
     Active Substance: CELECOXIB
     Dosage: 200 MG, (TWICE A DAY) AS NEEDED
     Route: 048
  8. TRIAMCINOLONE [Concomitant]
     Active Substance: TRIAMCINOLONE
     Dosage: 40 MG/ML, UPON DIRECTIVES OF PHYSICIAN
     Route: 030
  9. LYRICA [Concomitant]
     Active Substance: PREGABALIN
     Dosage: 75 MG, DAILY
     Route: 065

REACTIONS (4)
  - Gait inability [Unknown]
  - Skin cancer [Unknown]
  - Blood pressure increased [Recovering/Resolving]
  - Impaired healing [Unknown]

NARRATIVE: CASE EVENT DATE: 201803
